FAERS Safety Report 4562934-7 (Version None)
Quarter: 2005Q1

REPORT INFORMATION
  Report Type: 
  Country: None (occurrence: None)
  Receive Date: 20050125
  Receipt Date: 20050112
  Transmission Date: 20050727
  Serious: Yes (Other)
  Sender: FDA-Public Use
  Company Number: 2005014074

PATIENT
  Age: 78 Year
  Sex: Female

DRUGS (4)
  1. DIFLUCAN [Suspect]
     Indication: DIABETIC ULCER
     Dosage: 200 MG (200 MG, 1 IN 1 D), ORAL
     Route: 048
  2. DIFLUCAN [Suspect]
     Indication: FUNGAL INFECTION
     Dosage: 200 MG (200 MG, 1 IN 1 D), ORAL
     Route: 048
  3. CLARITHROMYCIN [Concomitant]
  4. GLICLAZIDE (GLICLAZIDE) [Concomitant]

REACTIONS (1)
  - HYPOGLYCAEMIA [None]
